FAERS Safety Report 5156805-5 (Version None)
Quarter: 2006Q4

REPORT INFORMATION
  Report Type: 
  Country: None (occurrence: None)
  Receive Date: 20061115
  Receipt Date: 20061107
  Transmission Date: 20070319
  Serious: Yes (Other)
  Sender: FDA-Public Use
  Company Number: 163-20785-06110411

PATIENT
  Age: 52 Year
  Sex: Female

DRUGS (1)
  1. THALOMID [Suspect]
     Indication: MULTIPLE MYELOMA
     Dosage: 50-400MG, DAILY, ORAL
     Route: 048
     Dates: start: 20050511, end: 20061001

REACTIONS (7)
  - FEELING ABNORMAL [None]
  - FEELING HOT [None]
  - HYPERAESTHESIA [None]
  - NEUROPATHY PERIPHERAL [None]
  - OPHTHALMOPLEGIA [None]
  - PARAESTHESIA [None]
  - SUNBURN [None]
